FAERS Safety Report 22188015 (Version 1)
Quarter: 2023Q2

REPORT INFORMATION
  Report Type: Report from Study
  Country: HN (occurrence: HN)
  Receive Date: 20230408
  Receipt Date: 20230408
  Transmission Date: 20230721
  Serious: Yes (Other)
  Sender: FDA-Public Use
  Company Number: HN-002147023-NVSC2023HN080138

PATIENT
  Age: 62 Year
  Sex: Female

DRUGS (1)
  1. EXFORGE HCT [Suspect]
     Active Substance: AMLODIPINE BESYLATE\HYDROCHLOROTHIAZIDE\VALSARTAN
     Indication: Hypertension
     Dosage: 10/320/25 MG, QD
     Route: 065
     Dates: start: 2021

REACTIONS (2)
  - Diabetes mellitus [Unknown]
  - Illness [Unknown]

NARRATIVE: CASE EVENT DATE: 20230320
